FAERS Safety Report 15458543 (Version 3)
Quarter: 2019Q1

REPORT INFORMATION
  Report Type: Report from Study
  Country: US (occurrence: US)
  Receive Date: 20181003
  Receipt Date: 20190128
  Transmission Date: 20190417
  Serious: Yes (Other)
  Sender: FDA-Public Use
  Company Number: US-UCBSA-2018043643

PATIENT
  Age: 51 Year
  Sex: Female

DRUGS (3)
  1. LACOSAMIDE. [Suspect]
     Active Substance: LACOSAMIDE
     Dosage: 200 MG, ONCE DAILY (QD)
     Route: 048
     Dates: start: 20190114, end: 20190115
  2. LACOSAMIDE. [Suspect]
     Active Substance: LACOSAMIDE
     Indication: PARTIAL SEIZURES
     Dosage: 200 MG, 2X/DAY (BID)
     Route: 048
  3. KEPPRA [Suspect]
     Active Substance: LEVETIRACETAM
     Indication: PARTIAL SEIZURES
     Dosage: 1000 MG, 2X/DAY (BID)
     Route: 048

REACTIONS (4)
  - Seizure [Not Recovered/Not Resolved]
  - Product dose omission [Unknown]
  - Intentional product misuse [Unknown]
  - Product packaging issue [Unknown]

NARRATIVE: CASE EVENT DATE: 2018
